FAERS Safety Report 19475732 (Version 1)
Quarter: 2021Q2

REPORT INFORMATION
  Report Type: Spontaneous
  Country: FR (occurrence: FR)
  Receive Date: 20210629
  Receipt Date: 20210629
  Transmission Date: 20210717
  Serious: Yes (Hospitalization)
  Sender: FDA-Public Use
  Company Number: FR-ABBVIE-21K-056-3971012-00

PATIENT
  Age: 64 Year
  Sex: Male
  Weight: 95 kg

DRUGS (4)
  1. IMBRUVICA [Suspect]
     Active Substance: IBRUTINIB
     Indication: WALDENSTROM^S MACROGLOBULINAEMIA
     Route: 048
     Dates: start: 202006, end: 20210518
  2. DALACINE [CLINDAMYCIN HYDROCHLORIDE] [Suspect]
     Active Substance: CLINDAMYCIN HYDROCHLORIDE
     Indication: INGROWING NAIL
     Dosage: 300 MG
     Route: 048
     Dates: start: 20210401, end: 20210415
  3. AVODART [Concomitant]
     Active Substance: DUTASTERIDE
     Indication: PROSTATIC DISORDER
     Dosage: 0.5 MG
     Route: 048
     Dates: start: 20210218
  4. PERMIXON [Concomitant]
     Active Substance: HERBALS\SAW PALMETTO
     Indication: PROSTATIC DISORDER
     Dosage: 160 MG
     Route: 048
     Dates: start: 20181001, end: 20210218

REACTIONS (1)
  - Agranulocytosis [Recovered/Resolved]

NARRATIVE: CASE EVENT DATE: 20210513
